FAERS Safety Report 11824600 (Version 2)
Quarter: 2015Q4

REPORT INFORMATION
  Report Type: Report from Study
  Country: US (occurrence: US)
  Receive Date: 20151210
  Receipt Date: 20151217
  Transmission Date: 20160305
  Serious: Yes (Hospitalization)
  Sender: FDA-Public Use
  Company Number: US-KADMON PHARMACEUTICALS, LLC-KAD201512-004295

PATIENT
  Age: 53 Year
  Sex: Male
  Weight: 54.88 kg

DRUGS (10)
  1. OMEPRAZOLE. [Concomitant]
     Active Substance: OMEPRAZOLE
  2. VIEKIRA PAK [Suspect]
     Active Substance: DASABUVIR\OMBITASVIR\PARITAPREVIR\RITONAVIR
     Indication: HEPATITIS C
     Dosage: TABLET
     Route: 048
     Dates: start: 20150713
  3. RIBAVIRIN 800 MG TABLETS [Suspect]
     Active Substance: RIBAVIRIN
     Indication: HEPATITIS C
     Route: 048
     Dates: start: 20150713
  4. COREG [Concomitant]
     Active Substance: CARVEDILOL
  5. PREDNISONE. [Concomitant]
     Active Substance: PREDNISONE
  6. ASPIRIN. [Concomitant]
     Active Substance: ASPIRIN
  7. TRAMADOL. [Concomitant]
     Active Substance: TRAMADOL
  8. PLAQUENIL [Concomitant]
     Active Substance: HYDROXYCHLOROQUINE SULFATE
  9. LISINOPRIL. [Concomitant]
     Active Substance: LISINOPRIL
  10. IMURAN [Concomitant]
     Active Substance: AZATHIOPRINE

REACTIONS (2)
  - Chest pain [Recovered/Resolved]
  - Back pain [Recovered/Resolved]

NARRATIVE: CASE EVENT DATE: 20151201
